FAERS Safety Report 14374398 (Version 1)
Quarter: 2018Q1

REPORT INFORMATION
  Report Type: Spontaneous
  Country: FR (occurrence: FR)
  Receive Date: 20180111
  Receipt Date: 20180111
  Transmission Date: 20180509
  Serious: Yes (Hospitalization)
  Sender: FDA-Public Use
  Company Number: FR-CONCORDIA PHARMACEUTICALS INC.-E2B_00009407

PATIENT
  Age: 46 Year
  Sex: Female
  Weight: 58 kg

DRUGS (6)
  1. DOLIPRANE [Suspect]
     Active Substance: ACETAMINOPHEN
     Indication: TOOTHACHE
     Route: 048
     Dates: start: 20171107, end: 20171107
  2. SPIRAMYCINE EG 3 M.U.I., COMPRIM? PELLICUL? [Suspect]
     Active Substance: SPIRAMYCIN
     Indication: TOOTH INFECTION
     Route: 048
     Dates: start: 20171107, end: 20171107
  3. AMOXICILLINE ARROW 1 G, COMPRIM? PELLICUL? DISPERSIBLE [Suspect]
     Active Substance: AMOXICILLIN
     Indication: TOOTH INFECTION
     Route: 048
     Dates: start: 20171103, end: 20171106
  4. ULTRALEVURE [Suspect]
     Active Substance: SACCHAROMYCES CEREVISIAE
     Indication: DIARRHOEA
     Route: 048
     Dates: start: 20171109, end: 20171115
  5. PREDNISOLONE. [Suspect]
     Active Substance: PREDNISOLONE
     Indication: TOOTHACHE
     Route: 048
     Dates: start: 20171103, end: 20171106
  6. AUGMENTIN [Suspect]
     Active Substance: AMOXICILLIN\CLAVULANATE POTASSIUM
     Indication: TOOTH INFECTION
     Route: 048
     Dates: start: 20171107, end: 20171108

REACTIONS (1)
  - Hepatitis toxic [Recovering/Resolving]

NARRATIVE: CASE EVENT DATE: 20171109
